FAERS Safety Report 6739970-5 (Version None)
Quarter: 2010Q2

REPORT INFORMATION
  Report Type: 
  Country: None (occurrence: None)
  Receive Date: 20100525
  Receipt Date: 20100512
  Transmission Date: 20101027
  Serious: Yes (Other)
  Sender: FDA-Public Use
  Company Number: US-ELI_LILLY_AND_COMPANY-US201005003519

PATIENT
  Sex: Female

DRUGS (8)
  1. HUMATROPE [Suspect]
     Indication: HYPOTHALAMO-PITUITARY DISORDER
     Dosage: 34 U, UNK
  2. SYNTHROID [Concomitant]
  3. TESTOSTERONE [Concomitant]
  4. CORTEF [Concomitant]
  5. COUMADIN [Concomitant]
  6. AGRYLIN [Concomitant]
     Indication: PLATELET COUNT INCREASED
  7. MULTI-VITAMIN [Concomitant]
  8. MAGNESIUM [Concomitant]

REACTIONS (4)
  - HEART RATE DECREASED [None]
  - HEART RATE INCREASED [None]
  - HYPOTENSION [None]
  - SUPRAVENTRICULAR TACHYCARDIA [None]
